FAERS Safety Report 8993379 (Version 1)
Quarter: 2013Q1

REPORT INFORMATION
  Report Type: Spontaneous
  Country: US (occurrence: US)
  Receive Date: 20130102
  Receipt Date: 20130102
  Transmission Date: 20140127
  Serious: Yes (Other)
  Sender: FDA-Public Use
  Company Number: US-PFIZER INC-2012332448

PATIENT
  Age: 49 Year
  Sex: 0

DRUGS (3)
  1. LYRICA [Suspect]
     Indication: PAIN MANAGEMENT
     Dosage: 200 MG, 2X/DAY
  2. EFFEXOR XR [Suspect]
     Dosage: 150 MG, DAILY
  3. CELEBREX [Suspect]
     Indication: PAIN
     Dosage: 200 MG, DAILY

REACTIONS (2)
  - Staphylococcal infection [Unknown]
  - Surgery [Unknown]
